FAERS Safety Report 13921262 (Version 1)
Quarter: 2017Q3

REPORT INFORMATION
  Report Type: Spontaneous
  Country: US (occurrence: US)
  Receive Date: 20170830
  Receipt Date: 20170830
  Transmission Date: 20171127
  Serious: Yes (Other)
  Sender: FDA-Public Use
  Company Number: US-PFIZER INC-2017364873

PATIENT
  Age: 90 Year
  Sex: Male

DRUGS (3)
  1. NEURONTIN [Suspect]
     Active Substance: GABAPENTIN
     Indication: PAIN
     Dosage: 100 MG, 3X/DAY
  2. PRAMIPEXOLE. [Concomitant]
     Active Substance: PRAMIPEXOLE
     Dosage: 0.25 MG, 3X/DAY
  3. NEURONTIN [Suspect]
     Active Substance: GABAPENTIN
     Indication: PAIN IN EXTREMITY

REACTIONS (8)
  - Pain in extremity [Unknown]
  - Feeling abnormal [Unknown]
  - Feeling cold [Unknown]
  - Condition aggravated [Unknown]
  - Feeling jittery [Unknown]
  - Pelvic fracture [Unknown]
  - Product use in unapproved indication [Unknown]
  - Fall [Unknown]
